FAERS Safety Report 4629454-2 (Version None)
Quarter: 2005Q2

REPORT INFORMATION
  Report Type: 
  Country: None (occurrence: None)
  Receive Date: 20050405
  Receipt Date: 20050324
  Transmission Date: 20051028
  Serious: Yes (Hospitalization)
  Sender: FDA-Public Use
  Company Number: CH-2004-028404

PATIENT
  Age: 51 Year
  Sex: Male
  Weight: 62 kg

DRUGS (2)
  1. BETASERON [Suspect]
     Indication: MULTIPLE SCLEROSIS
     Dosage: SEE IMAGE
     Route: 058
     Dates: start: 19961001, end: 20040601
  2. BETASERON [Suspect]
     Indication: MULTIPLE SCLEROSIS
     Dosage: SEE IMAGE
     Route: 058
     Dates: start: 20020301

REACTIONS (5)
  - ABDOMINAL PAIN UPPER [None]
  - INJECTION SITE ABSCESS [None]
  - INJECTION SITE CELLULITIS [None]
  - LEUKOPENIA [None]
  - STAPHYLOCOCCAL INFECTION [None]
